FAERS Safety Report 9324653 (Version 1)
Quarter: 2013Q2

REPORT INFORMATION
  Report Type: Spontaneous
  Country: US (occurrence: US)
  Receive Date: 20130603
  Receipt Date: 20130603
  Transmission Date: 20140414
  Serious: Yes (Hospitalization)
  Sender: FDA-Public Use
  Company Number: US-GLAXOSMITHKLINE-A1024911A

PATIENT
  Age: 62 Year
  Sex: Male

DRUGS (5)
  1. VENTOLIN HFA [Suspect]
     Indication: BRONCHITIS
     Dosage: 1PUFF UNKNOWN
     Route: 055
     Dates: start: 20130512, end: 20130514
  2. CIPRO [Concomitant]
  3. METOPROLOL [Concomitant]
  4. INSULIN [Concomitant]
  5. MESALAMINE [Concomitant]

REACTIONS (5)
  - Life support [Recovering/Resolving]
  - Mechanical ventilation [Recovering/Resolving]
  - Oropharyngeal pain [Recovering/Resolving]
  - Throat tightness [Recovering/Resolving]
  - Cough [Recovering/Resolving]
